FAERS Safety Report 8990638 (Version 1)
Quarter: 2012Q4

REPORT INFORMATION
  Report Type: 
  Country: CA (occurrence: AU)
  Receive Date: 20121228
  Receipt Date: 20121228
  Transmission Date: 20130627
  Serious: Yes (Death, Hospitalization, Other)
  Sender: FDA-Public Use
  Company Number: CA-GENZYME-THYM-1003569

PATIENT
  Age: 25 Year
  Sex: Female
  Weight: 74 kg

DRUGS (4)
  1. THYMOGLOBULIN [Suspect]
     Indication: PROPHYLAXIS AGAINST GRAFT VERSUS HOST DISEASE
     Dosage: 0.5 mg/kg, qd
     Route: 042
     Dates: start: 20111129
  2. THYMOGLOBULIN [Suspect]
     Dosage: 2 mg/kg, qd
     Route: 042
     Dates: start: 20111130
  3. THYMOGLOBULIN [Suspect]
     Dosage: 2 mg/kg, qd
     Route: 042
     Dates: start: 20111202
  4. FLUDARA [Suspect]
     Indication: ACUTE MYELOID LEUKAEMIA RECURRENT
     Dosage: UNK
     Route: 065

REACTIONS (8)
  - Multi-organ failure [Fatal]
  - Brain death [Fatal]
  - Dysphagia [Unknown]
  - Septic shock [Fatal]
  - Haematemesis [Unknown]
  - Infusion related reaction [Unknown]
  - Acute myeloid leukaemia recurrent [Fatal]
  - Febrile neutropenia [Fatal]
